FAERS Safety Report 10048168 (Version 1)
Quarter: 2014Q1

REPORT INFORMATION
  Report Type: Spontaneous
  Country: US (occurrence: US)
  Receive Date: 20140331
  Receipt Date: 20140331
  Transmission Date: 20141002
  Serious: Yes (Other)
  Sender: FDA-Public Use
  Company Number: US-GLAXOSMITHKLINE-A1062101A

PATIENT
  Age: 62 Year
  Sex: Female
  Weight: 89.3 kg

DRUGS (6)
  1. ARZERRA [Suspect]
     Indication: PRODUCT USED FOR UNKNOWN INDICATION
     Dosage: 2000MG SINGLE DOSE
     Route: 042
  2. PRISTIQ [Concomitant]
  3. HUMALOG INSULIN [Concomitant]
  4. LISINOPRIL [Concomitant]
  5. ZYPREXA [Concomitant]
  6. COMPAZINE [Concomitant]

REACTIONS (4)
  - Urticaria [Recovered/Resolved]
  - Pruritus [Recovered/Resolved]
  - Eye swelling [Recovered/Resolved]
  - Erythema [Recovered/Resolved]
